FAERS Safety Report 10914137 (Version 1)
Quarter: 2015Q1

REPORT INFORMATION
  Report Type: Report from Study
  Country: US (occurrence: US)
  Receive Date: 20150313
  Receipt Date: 20150313
  Transmission Date: 20150721
  Serious: Yes (Hospitalization)
  Sender: FDA-Public Use
  Company Number: US-BAYER-2014-160006

PATIENT
  Age: 63 Year
  Sex: Male

DRUGS (3)
  1. NEXAVAR [Suspect]
     Active Substance: SORAFENIB
     Indication: HEPATOCELLULAR CARCINOMA
     Dosage: 200 MG, BID
     Route: 048
     Dates: start: 2014
  2. NEXAVAR [Suspect]
     Active Substance: SORAFENIB
     Indication: HEPATOCELLULAR CARCINOMA
     Dosage: 400 MG, BID
     Route: 048
  3. NEXAVAR [Suspect]
     Active Substance: SORAFENIB
     Indication: HEPATOCELLULAR CARCINOMA
     Dosage: 400 MG, BID
     Route: 048
     Dates: start: 20141003

REACTIONS (13)
  - Asthenia [None]
  - Depression [None]
  - Drug dose omission [None]
  - Anal fistula [None]
  - Pain [None]
  - Nausea [None]
  - Rectal abscess [None]
  - Blood glucose abnormal [None]
  - Fatigue [None]
  - Vomiting [None]
  - Weight decreased [None]
  - Pruritus generalised [Recovered/Resolved]
  - Decreased appetite [None]

NARRATIVE: CASE EVENT DATE: 20141003
